FAERS Safety Report 9783108 (Version 1)
Quarter: 2013Q4

REPORT INFORMATION
  Report Type: Spontaneous
  Country: ES (occurrence: ES)
  Receive Date: 20131226
  Receipt Date: 20131226
  Transmission Date: 20140711
  Serious: Yes (Hospitalization, Other)
  Sender: FDA-Public Use
  Company Number: ES-PFIZER INC-2013368060

PATIENT
  Age: 79 Year
  Sex: Female

DRUGS (6)
  1. TRANGOREX [Suspect]
     Dosage: 200 MG, DAILY
     Route: 048
     Dates: start: 20110119, end: 20130104
  2. EMCONCOR COR [Interacting]
     Dosage: 2.5 MG, DAILY
     Route: 048
     Dates: start: 201101
  3. IMUREL [Concomitant]
  4. PREDNISONA [Concomitant]
     Dosage: UNK
  5. OMEPRAZOLE [Concomitant]
  6. SINTROM [Concomitant]
     Dosage: UNK

REACTIONS (3)
  - Drug interaction [Unknown]
  - Bradyarrhythmia [Recovered/Resolved]
  - Syncope [Recovered/Resolved]
